FAERS Safety Report 9631617 (Version 2)
Quarter: 2013Q4

REPORT INFORMATION
  Report Type: Spontaneous
  Country: US (occurrence: US)
  Receive Date: 20131018
  Receipt Date: 20131212
  Transmission Date: 20140711
  Serious: No
  Sender: FDA-Public Use
  Company Number: US-PFIZER INC-2013295424

PATIENT
  Age: 84 Year
  Sex: Male
  Weight: 107 kg

DRUGS (3)
  1. ADVIL [Suspect]
     Indication: PAIN
     Dosage: 200 MG, 1X/DAY (REPORTED AS DAILY AT NIGHT)
     Route: 048
     Dates: start: 201309
  2. BYSTOLIC [Concomitant]
     Indication: HYPERTENSION
     Dosage: UNK
  3. CLOPIDOGREL BISULFATE [Concomitant]
     Indication: CARDIAC DISORDER
     Dosage: UNK, 4 TIMES A WEEK

REACTIONS (2)
  - Dysgeusia [Unknown]
  - Product taste abnormal [Unknown]
